FAERS Safety Report 18695336 (Version 16)
Quarter: 2024Q2

REPORT INFORMATION
  Report Type: Spontaneous
  Country: US (occurrence: US)
  Receive Date: 20210104
  Receipt Date: 20240621
  Transmission Date: 20240716
  Serious: Yes (Hospitalization, Disabling, Other)
  Sender: FDA-Public Use
  Company Number: US-PFIZER INC-2020490394

PATIENT
  Age: 84 Year
  Sex: Female

DRUGS (4)
  1. PREMARIN [Suspect]
     Active Substance: ESTROGENS, CONJUGATED
     Dosage: THREE TIMES A WEEK
     Route: 067
  2. PREMARIN [Suspect]
     Active Substance: ESTROGENS, CONJUGATED
     Dosage: APPLY A PEA SIZED AMOUNT VIA FINGERTIP THREE TIMES A WEEK
     Route: 067
  3. PREMARIN [Suspect]
     Active Substance: ESTROGENS, CONJUGATED
     Dosage: UNK
  4. PREMARIN [Suspect]
     Active Substance: ESTROGENS, CONJUGATED
     Dosage: 0.5 G AT BEDTIME/ NIGHTLY. APPLY 0.5 G WITH FINGERTIP TO VAGINAL OPENING AND JUST INSIDE
     Route: 067

REACTIONS (30)
  - Fall [Unknown]
  - Urinary tract infection [Recovered/Resolved]
  - Urinary tract infection bacterial [Recovered/Resolved]
  - Vulvovaginal pruritus [Unknown]
  - Macular degeneration [Unknown]
  - Cerebrovascular accident [Recovering/Resolving]
  - Critical illness [Unknown]
  - Off label use [Unknown]
  - Off label use [Unknown]
  - Wrong technique in product usage process [Unknown]
  - Cystitis [Unknown]
  - Diarrhoea [Unknown]
  - Dysstasia [Unknown]
  - Fear [Unknown]
  - Malaise [Not Recovered/Not Resolved]
  - Gastrointestinal pain [Unknown]
  - Dry eye [Unknown]
  - Constipation [Unknown]
  - Dehydration [Unknown]
  - Visual impairment [Not Recovered/Not Resolved]
  - Hypersensitivity [Unknown]
  - Back pain [Unknown]
  - Speech disorder [Unknown]
  - Peripheral swelling [Unknown]
  - Hypertension [Not Recovered/Not Resolved]
  - Eye disorder [Unknown]
  - Injury [Unknown]
  - Fatigue [Unknown]
  - Malaise [Unknown]
  - Atrophic vulvovaginitis [Unknown]

NARRATIVE: CASE EVENT DATE: 20210101
